FAERS Safety Report 9013998 (Version 2)
Quarter: 2013Q3

REPORT INFORMATION
  Report Type: Spontaneous
  Country: GB (occurrence: GB)
  Receive Date: 20130115
  Receipt Date: 20130926
  Transmission Date: 20140515
  Serious: Yes (Life-Threatening, Other)
  Sender: FDA-Public Use
  Company Number: GB-ROCHE-1179426

PATIENT
  Age: 63 Year
  Sex: Male
  Weight: 92.8 kg

DRUGS (12)
  1. ROACTEMRA [Suspect]
     Indication: RHEUMATOID ARTHRITIS
     Route: 042
     Dates: start: 20120912, end: 20130102
  2. ALENDRONIC ACID [Concomitant]
  3. ASPIRIN [Concomitant]
  4. BISOPROLOL [Concomitant]
  5. BRICANYL [Concomitant]
  6. CALCICHEW [Concomitant]
  7. FOLIC ACID [Concomitant]
  8. METHOTREXATE [Concomitant]
  9. PERINDOPRIL [Concomitant]
  10. PREDNISOLONE [Concomitant]
  11. TIOTROPIUM [Concomitant]
  12. CLEXANE [Concomitant]

REACTIONS (4)
  - Haemoptysis [Unknown]
  - Dyspnoea [Unknown]
  - Pulmonary embolism [Not Recovered/Not Resolved]
  - Liver function test abnormal [Recovering/Resolving]
